FAERS Safety Report 11859342 (Version 2)
Quarter: 2015Q4

REPORT INFORMATION
  Report Type: Spontaneous
  Country: JP (occurrence: JP)
  Receive Date: 20151221
  Receipt Date: 20151222
  Transmission Date: 20160305
  Serious: Yes (Life-Threatening, Other)
  Sender: FDA-Public Use
  Company Number: JP-ABBVIE-15P-087-1522435-00

PATIENT
  Age: 64 Year
  Sex: Male

DRUGS (11)
  1. SEROQUEL [Suspect]
     Active Substance: QUETIAPINE FUMARATE
     Indication: SCHIZOPHRENIA
     Route: 048
     Dates: start: 201503
  2. FP-OD [Concomitant]
     Active Substance: SELEGILINE HYDROCHLORIDE
     Indication: PRODUCT USED FOR UNKNOWN INDICATION
     Route: 065
  3. MIRAPEX [Concomitant]
     Active Substance: PRAMIPEXOLE DIHYDROCHLORIDE
     Indication: PRODUCT USED FOR UNKNOWN INDICATION
     Route: 065
  4. TAKEPRON [Concomitant]
     Active Substance: LANSOPRAZOLE
     Indication: PRODUCT USED FOR UNKNOWN INDICATION
     Route: 065
  5. SELENICA-R [Suspect]
     Active Substance: VALPROATE SODIUM
     Indication: PRODUCT USED FOR UNKNOWN INDICATION
     Route: 048
     Dates: start: 20151009
  6. NEODOPASOL [Suspect]
     Active Substance: BENSERAZIDE HYDROCHLORIDE\LEVODOPA
     Indication: PARKINSON^S DISEASE
     Route: 048
     Dates: start: 201503
  7. RHYTHMY [Concomitant]
     Active Substance: RILMAZAFONE HYDROCHLORIDE
     Indication: PRODUCT USED FOR UNKNOWN INDICATION
     Route: 065
  8. MENESIT [Concomitant]
     Active Substance: CARBIDOPA\LEVODOPA
     Indication: PRODUCT USED FOR UNKNOWN INDICATION
     Route: 065
  9. KW-6002 [Suspect]
     Active Substance: ISTRADEFYLLINE
     Indication: PARKINSON^S DISEASE
     Route: 048
     Dates: start: 20151009
  10. NEUPRO [Suspect]
     Active Substance: ROTIGOTINE
     Indication: PARKINSON^S DISEASE
     Route: 062
     Dates: start: 201503
  11. SYMMETREL [Concomitant]
     Active Substance: AMANTADINE HYDROCHLORIDE
     Indication: PRODUCT USED FOR UNKNOWN INDICATION
     Route: 065

REACTIONS (2)
  - Suicide attempt [Recovered/Resolved]
  - Bipolar I disorder [Unknown]

NARRATIVE: CASE EVENT DATE: 20151115
